FAERS Safety Report 16934119 (Version 2)
Quarter: 2020Q1

REPORT INFORMATION
  Report Type: Spontaneous
  Country: US (occurrence: US)
  Receive Date: 20191018
  Receipt Date: 20200117
  Transmission Date: 20200409
  Serious: No
  Sender: FDA-Public Use
  Company Number: US-MYLANLABS-2019M1093591

PATIENT
  Age: 54 Year
  Sex: Female
  Weight: 120 kg

DRUGS (1)
  1. GLATIRAMER ACETATE INJECTION [Suspect]
     Active Substance: GLATIRAMER ACETATE
     Indication: MULTIPLE SCLEROSIS
     Dosage: 40 MILLIGRAM, 3XW
     Dates: start: 201901

REACTIONS (5)
  - Injection site mass [Not Recovered/Not Resolved]
  - Injection site indentation [Unknown]
  - Product dose omission [Not Recovered/Not Resolved]
  - Injection site haemorrhage [Unknown]
  - Tenderness [Unknown]

NARRATIVE: CASE EVENT DATE: 201901
